FAERS Safety Report 5745521-4 (Version None)
Quarter: 2008Q2

REPORT INFORMATION
  Report Type: 
  Country: None (occurrence: None)
  Receive Date: 20080521
  Receipt Date: 20080509
  Transmission Date: 20081010
  Serious: Yes (Life-Threatening, Hospitalization)
  Sender: FDA-Public Use
  Company Number: SI-VALEANT-2008VX001086

PATIENT
  Age: 77 Year
  Sex: Male

DRUGS (4)
  1. TASMAR [Suspect]
     Indication: PARKINSON'S DISEASE
     Route: 065
     Dates: start: 20071020
  2. MIDAZOLAM HCL [Concomitant]
     Route: 065
  3. LYRICA [Concomitant]
     Route: 065
  4. AZILECT [Concomitant]
     Route: 065

REACTIONS (3)
  - COLITIS ISCHAEMIC [None]
  - PERITONITIS [None]
  - SEPSIS [None]
